FAERS Safety Report 15335038 (Version 3)
Quarter: 2018Q4

REPORT INFORMATION
  Report Type: Spontaneous
  Country: DE (occurrence: DE)
  Receive Date: 20180830
  Receipt Date: 20181210
  Transmission Date: 20190204
  Serious: Yes (Life-Threatening, Other)
  Sender: FDA-Public Use
  Company Number: DE-TEVA-2018-DE-948228

PATIENT
  Age: 58 Year
  Sex: Male
  Weight: 114 kg

DRUGS (1)
  1. VALSARTAN ABZ 160 MG FILMTABLETTEN [Suspect]
     Active Substance: VALSARTAN
     Indication: HYPERTENSION
     Dosage: 160 MILLIGRAM DAILY; DAILY INTAKE UNTIL GENERAL PRACTITIONER CHANGED MEDICATION; 1-0-0
     Route: 048
     Dates: start: 20141124, end: 20180808

REACTIONS (4)
  - Metastasis [Not Recovered/Not Resolved]
  - Malignant melanoma [Not Recovered/Not Resolved]
  - Product impurity [Unknown]
  - Lymphoma [Not Recovered/Not Resolved]

NARRATIVE: CASE EVENT DATE: 201606
